FAERS Safety Report 8722055 (Version 3)
Quarter: 2012Q4

REPORT INFORMATION
  Report Type: 
  Country: IT (occurrence: IT)
  Receive Date: 20120814
  Receipt Date: 20121126
  Transmission Date: 20130627
  Serious: Yes (Hospitalization)
  Sender: FDA-Public Use
  Company Number: PHHY2012IT069524

PATIENT
  Age: 39 Year
  Sex: Female

DRUGS (4)
  1. VOLTAREN [Suspect]
     Dosage: 60 DF, UNK
     Route: 048
     Dates: start: 20120712, end: 20120712
  2. STILNOX [Suspect]
     Dosage: 60 DF, UNK
     Route: 048
     Dates: start: 20120712, end: 20120712
  3. LANOXIN [Suspect]
     Dosage: 6 vials
     Route: 042
     Dates: start: 20120712, end: 20120712
  4. ZOLOFT [Suspect]
     Dosage: 120 DF, UNK
     Route: 048
     Dates: start: 20120712, end: 20120712

REACTIONS (5)
  - Unresponsive to stimuli [Recovered/Resolved]
  - Abnormal behaviour [Recovered/Resolved]
  - Vomiting [Recovered/Resolved]
  - Somnolence [Recovered/Resolved]
  - Intentional overdose [Recovered/Resolved]
